FAERS Safety Report 9120785 (Version 1)
Quarter: 2013Q1

REPORT INFORMATION
  Report Type: Spontaneous
  Country: US (occurrence: US)
  Receive Date: 20130226
  Receipt Date: 20130226
  Transmission Date: 20140127
  Serious: No
  Sender: FDA-Public Use
  Company Number: US-TARO-2012P1003656

PATIENT
  Sex: 0

DRUGS (1)
  1. NYSTATIN [Suspect]

REACTIONS (4)
  - Rash [Unknown]
  - Pruritus [Unknown]
  - Burning sensation [Unknown]
  - Pain [Unknown]
